FAERS Safety Report 18143043 (Version 9)
Quarter: 2020Q4

REPORT INFORMATION
  Report Type: Report from Study
  Country: US (occurrence: US)
  Receive Date: 20200813
  Receipt Date: 20201226
  Transmission Date: 20210113
  Serious: No
  Sender: FDA-Public Use
  Company Number: NVSC2020US222972

PATIENT
  Age: 71 Year
  Sex: Male

DRUGS (3)
  1. CARVEDILOL. [Concomitant]
     Active Substance: CARVEDILOL
     Indication: PRODUCT USED FOR UNKNOWN INDICATION
     Dosage: UNK
     Route: 065
  2. ENTRESTO [Suspect]
     Active Substance: SACUBITRIL\VALSARTAN
     Indication: EJECTION FRACTION DECREASED
     Dosage: 25 MG, BID (24.26 MG)
     Route: 048
     Dates: start: 20200730
  3. ENTRESTO [Suspect]
     Active Substance: SACUBITRIL\VALSARTAN
     Indication: CARDIAC FAILURE
     Route: 048
     Dates: start: 202007

REACTIONS (17)
  - Tooth disorder [Unknown]
  - Rash [Unknown]
  - Feeling abnormal [Unknown]
  - Dyspnoea [Unknown]
  - Abscess [Unknown]
  - Oral pain [Unknown]
  - Heart rate decreased [Unknown]
  - Weight decreased [Unknown]
  - Blood glucose increased [Unknown]
  - Dermatitis contact [Unknown]
  - Toothache [Unknown]
  - Hypotension [Unknown]
  - Weight increased [Unknown]
  - Fall [Unknown]
  - Flushing [Unknown]
  - Herpes zoster [Recovering/Resolving]
  - Dizziness [Unknown]

NARRATIVE: CASE EVENT DATE: 20200819
